FAERS Safety Report 7408825-5 (Version None)
Quarter: 2011Q2

REPORT INFORMATION
  Report Type: 
  Country: None (occurrence: None)
  Receive Date: 20110412
  Receipt Date: 20110330
  Transmission Date: 20111010
  Serious: Yes (Death, Other)
  Sender: FDA-Public Use
  Company Number: AT-ACTELION-A-CH2011-46906

PATIENT
  Sex: Female
  Weight: 61 kg

DRUGS (7)
  1. ISOPTIN [Concomitant]
  2. SINTROM [Concomitant]
  3. TRACLEER [Suspect]
     Dosage: 32 MG, UNK
     Route: 048
  4. TRACLEER [Suspect]
     Indication: PULMONARY ARTERIAL HYPERTENSION
     Dosage: 62.5 MG, UNK
     Route: 048
     Dates: end: 20101027
  5. LASIX [Concomitant]
  6. CIPRALEX [Concomitant]
  7. BERODUAL [Concomitant]

REACTIONS (2)
  - CARDIAC FAILURE [None]
  - LIVER FUNCTION TEST ABNORMAL [None]
